FAERS Safety Report 8316679-8 (Version None)
Quarter: 2012Q2

REPORT INFORMATION
  Report Type: 
  Country: None (occurrence: None)
  Receive Date: 20120427
  Receipt Date: 20120426
  Transmission Date: 20120825
  Serious: Yes (Death)
  Sender: FDA-Public Use
  Company Number: PHHY2012PK035462

PATIENT
  Age: 78 Year
  Sex: Male

DRUGS (2)
  1. CALCIUM [Concomitant]
  2. ZOLEDRONOC ACID [Suspect]
     Indication: OSTEOPOROSIS
     Dosage: UNK UKN, UNK
     Route: 042
     Dates: start: 20110507

REACTIONS (1)
  - OESOPHAGEAL CARCINOMA [None]
